FAERS Safety Report 5497269-1 (Version None)
Quarter: 2007Q4

REPORT INFORMATION
  Report Type: 
  Country: None (occurrence: None)
  Receive Date: 20071025
  Receipt Date: 20060921
  Transmission Date: 20080405
  Serious: No
  Sender: FDA-Public Use
  Company Number: A0621014A

PATIENT
  Age: 71 Year
  Sex: Female

DRUGS (12)
  1. ADVAIR DISKUS 100/50 [Suspect]
     Indication: CHRONIC OBSTRUCTIVE PULMONARY DISEASE
     Dosage: 1PUFF TWICE PER DAY
     Route: 055
     Dates: start: 20010101
  2. ASACOL [Concomitant]
  3. ZYLOPRIM [Concomitant]
  4. ZOLOFT [Concomitant]
  5. AMIODARONE [Concomitant]
  6. AVAPRO [Concomitant]
  7. DIGOXIN [Concomitant]
  8. HYDRALAZINE HCL [Concomitant]
  9. CLARITIN [Concomitant]
  10. XANAX [Concomitant]
  11. SODIUM BICARBONATE [Concomitant]
  12. SYNTHROID [Concomitant]

REACTIONS (1)
  - HAIR GROWTH ABNORMAL [None]
